FAERS Safety Report 8789254 (Version 1)
Quarter: 2012Q4

REPORT INFORMATION
  Report Type: Spontaneous
  Country: US (occurrence: None)
  Receive Date: 20120904
  Receipt Date: 20120904
  Transmission Date: 20130627
  Serious: Yes (Hospitalization)
  Sender: FDA-Public Use
  Company Number: 1398765

PATIENT
  Age: 31 Year
  Sex: Female

DRUGS (2)
  1. PHENOBARBITAL [Suspect]
     Indication: SEIZURES
  2. CARBAMAZEPINE [Suspect]
     Indication: SEIZURES

REACTIONS (3)
  - Vanishing bile duct syndrome [None]
  - Cholelithiasis [None]
  - Hepatic fibrosis [None]
